FAERS Safety Report 7920011-9 (Version None)
Quarter: 2011Q4

REPORT INFORMATION
  Report Type: 
  Country: None (occurrence: None)
  Receive Date: 20111117
  Receipt Date: 20111111
  Transmission Date: 20120403
  Serious: Yes (Death, Hospitalization)
  Sender: FDA-Public Use
  Company Number: DE-BRISTOL-MYERS SQUIBB COMPANY-16222333

PATIENT
  Age: 70 Year
  Sex: Male
  Weight: 83 kg

DRUGS (3)
  1. CISPLATIN [Suspect]
     Indication: NON-SMALL CELL LUNG CANCER
     Dosage: LAST DOSE ON 19AUG2011 NO OF INFUSION-6
     Route: 042
     Dates: start: 20110506, end: 20110819
  2. VINORELBINE [Suspect]
     Indication: NON-SMALL CELL LUNG CANCER
     Dosage: VINORELBINE IV INFUSION.LAST DOSE ON 26AUG2011. NO OF INFUSION-12. D1 AND D8OF EACHCYCLE
     Route: 042
     Dates: start: 20110506, end: 20110826
  3. CETUXIMAB [Suspect]
     Indication: NON-SMALL CELL LUNG CANCER
     Dosage: CETUXIMAB IV INFUSION STRENGTH:5MG/ML .NO OF INFUSION-24 LAST DOSE ON 21OCT2011
     Route: 042
     Dates: start: 20110506, end: 20111021

REACTIONS (1)
  - PNEUMONIA [None]
